FAERS Safety Report 9934343 (Version 1)
Quarter: 2014Q1

REPORT INFORMATION
  Report Type: Spontaneous
  Country: US (occurrence: US)
  Receive Date: 20140228
  Receipt Date: 20140228
  Transmission Date: 20141002
  Serious: No
  Sender: FDA-Public Use
  Company Number: US-ABBVIE-13P-163-1116107-00

PATIENT
  Age: 72 Year
  Sex: Male

DRUGS (5)
  1. VALPROIC ACID [Suspect]
     Indication: DOPAMINE DYSREGULATION SYNDROME
     Dosage: 250 MILLIGRAM(S); DAILY
  2. CARBIDOPA W/ENTACAPONE/LEVODOPA [Concomitant]
     Indication: PRODUCT USED FOR UNKNOWN INDICATION
  3. CARBIDOPA W/ENTACAPONE/LEVODOPA [Concomitant]
  4. CARBIDOPA/LEVODOPA [Concomitant]
     Indication: PRODUCT USED FOR UNKNOWN INDICATION
  5. AMANTADINE [Concomitant]

REACTIONS (1)
  - Off label use [Unknown]
